FAERS Safety Report 8192950-8 (Version None)
Quarter: 2012Q1

REPORT INFORMATION
  Report Type: 
  Country: None (occurrence: None)
  Receive Date: 20120308
  Receipt Date: 20120227
  Transmission Date: 20120608
  Serious: Yes (Hospitalization, Other)
  Sender: FDA-Public Use
  Company Number: JP-BRISTOL-MYERS SQUIBB COMPANY-16422362

PATIENT
  Age: 59 Year
  Sex: Female
  Weight: 43 kg

DRUGS (7)
  1. LANSOPRAZOLE [Concomitant]
     Dosage: TABS
  2. TOLEDOMIN [Concomitant]
     Dosage: TABS
     Dates: start: 20111021, end: 20111118
  3. IRINOTECAN HCL [Concomitant]
     Dates: start: 20111109, end: 20111227
  4. PACLITAXEL [Suspect]
     Indication: METASTATIC GASTRIC CANCER
     Dosage: LAST DOSE:03OCT2011.
     Route: 042
     Dates: start: 20110727, end: 20111003
  5. DESYREL [Concomitant]
  6. HYALEIN [Concomitant]
     Dates: start: 20111018
  7. FERRO-GRADUMET [Concomitant]
     Dosage: TABS
     Dates: start: 20110809, end: 20111118

REACTIONS (2)
  - OESOPHAGEAL ULCER [None]
  - NEOPLASM MALIGNANT [None]
